FAERS Safety Report 6290153-5 (Version None)
Quarter: 2009Q3

REPORT INFORMATION
  Report Type: 
  Country: None (occurrence: None)
  Receive Date: 20090730
  Receipt Date: 20081215
  Transmission Date: 20100115
  Serious: No
  Sender: FDA-Public Use
  Company Number: US-BRISTOL-MYERS SQUIBB COMPANY-14444020

PATIENT
  Age: 69 Year
  Sex: Female
  Weight: 79 kg

DRUGS (7)
  1. COUMADIN [Suspect]
     Indication: THROMBOSIS
     Dosage: 1 DF = 1 TAB
  2. TRAZODONE HCL [Concomitant]
  3. PRAVASTATIN [Concomitant]
  4. LEVOTHYROXINE SODIUM [Concomitant]
  5. SERTRALINE [Concomitant]
  6. COZAAR [Concomitant]
  7. PROTONIX [Concomitant]

REACTIONS (3)
  - ABDOMINAL PAIN UPPER [None]
  - DIARRHOEA [None]
  - NAUSEA [None]
